FAERS Safety Report 6652532-3 (Version None)
Quarter: 2010Q1

REPORT INFORMATION
  Report Type: 
  Country: None (occurrence: None)
  Receive Date: 20100325
  Receipt Date: 20100325
  Transmission Date: 20100710
  Serious: Yes (Hospitalization)
  Sender: FDA-Public Use
  Company Number: None

PATIENT
  Age: 62 Year
  Sex: Male
  Weight: 73.5 kg

DRUGS (1)
  1. LISINOPRIL AND HYDROCHLOROTHIAZIDE [Suspect]
     Indication: HYPERTENSION
     Dosage: 1 TAB EVERY DAY PO
     Route: 048
     Dates: start: 20100114, end: 20100210

REACTIONS (7)
  - AGITATION [None]
  - ANGIOEDEMA [None]
  - BLOOD UREA INCREASED [None]
  - CONFUSIONAL STATE [None]
  - DELIRIUM TREMENS [None]
  - DYSPNOEA [None]
  - WHITE BLOOD CELL COUNT INCREASED [None]
